FAERS Safety Report 23867941 (Version 1)
Quarter: 2024Q2

REPORT INFORMATION
  Report Type: Spontaneous
  Country: US (occurrence: US)
  Receive Date: 20240517
  Receipt Date: 20240517
  Transmission Date: 20240716
  Serious: Yes (Life-Threatening, Other)
  Sender: FDA-Public Use
  Company Number: US-SABAL THERAPEUTICS LLC-2024-ATH-000012

PATIENT

DRUGS (7)
  1. QDOLO [Suspect]
     Active Substance: TRAMADOL HYDROCHLORIDE
     Indication: Suicide attempt
     Route: 065
  2. QDOLO [Suspect]
     Active Substance: TRAMADOL HYDROCHLORIDE
     Indication: Intentional overdose
  3. QDOLO [Suspect]
     Active Substance: TRAMADOL HYDROCHLORIDE
     Indication: Expired product administered
  4. VENLAFAXINE [Suspect]
     Active Substance: VENLAFAXINE HYDROCHLORIDE
     Indication: Suicide attempt
     Route: 065
  5. VENLAFAXINE [Suspect]
     Active Substance: VENLAFAXINE HYDROCHLORIDE
     Indication: Intentional overdose
  6. ALEVE PM [Suspect]
     Active Substance: DIPHENHYDRAMINE HYDROCHLORIDE\NAPROXEN SODIUM
     Indication: Suicide attempt
     Route: 065
  7. ALEVE PM [Suspect]
     Active Substance: DIPHENHYDRAMINE HYDROCHLORIDE\NAPROXEN SODIUM
     Indication: Intentional overdose

REACTIONS (4)
  - Serotonin syndrome [Recovering/Resolving]
  - Suicide attempt [Recovering/Resolving]
  - Intentional overdose [Unknown]
  - Expired product administered [Unknown]
